FAERS Safety Report 4887827-7 (Version None)
Quarter: 2006Q1

REPORT INFORMATION
  Report Type: 
  Country: None (occurrence: None)
  Receive Date: 20060123
  Receipt Date: 20050218
  Transmission Date: 20060701
  Serious: Yes (Hospitalization, Other)
  Sender: FDA-Public Use
  Company Number: US-MERCK-0502USA02806

PATIENT
  Age: 41 Year
  Sex: Female
  Weight: 48 kg

DRUGS (6)
  1. VIOXX [Suspect]
     Indication: ARTHRALGIA
     Route: 048
     Dates: start: 20010507, end: 20040731
  2. IMIPRAMINE HYDROCHLORIDE [Concomitant]
     Route: 065
  3. SERZONE [Concomitant]
     Route: 065
  4. NEURONTIN [Concomitant]
     Route: 065
  5. PLAQUENIL [Concomitant]
     Route: 065
  6. PRILOSEC [Concomitant]
     Route: 065

REACTIONS (3)
  - ADVERSE EVENT [None]
  - GALLBLADDER DISORDER [None]
  - VENTRICULAR HYPOKINESIA [None]
